FAERS Safety Report 18219318 (Version 10)
Quarter: 2021Q2

REPORT INFORMATION
  Report Type: Report from Study
  Country: US (occurrence: US)
  Receive Date: 20200901
  Receipt Date: 20210614
  Transmission Date: 20210717
  Serious: Yes (Hospitalization, Other)
  Sender: FDA-Public Use
  Company Number: NVSC2019US087003

PATIENT
  Age: 8 Month
  Sex: Female
  Weight: 7.4 kg

DRUGS (14)
  1. PREDNISOLONE. [Concomitant]
     Active Substance: PREDNISOLONE
     Dosage: 1.98 MG/KG, QD
     Route: 065
     Dates: start: 20190605
  2. RANITIDINE. [Concomitant]
     Active Substance: RANITIDINE
     Indication: GASTROINTESTINAL DISORDER PROPHYLAXIS
     Dosage: 4.00 MG/KG, QD
     Route: 065
     Dates: start: 20190520
  3. PREDNISOLONE. [Concomitant]
     Active Substance: PREDNISOLONE
     Dosage: 1.5 MG/KG, BID
     Route: 065
  4. ZOLGENSMA [Suspect]
     Active Substance: ONASEMNOGENE ABEPARVOVEC-XIOI
     Indication: SPINAL MUSCULAR ATROPHY
     Dosage: 41.30 ML, SINGLE (1.1X E14 VG/KG), ONCE/SINGLE
     Route: 042
     Dates: start: 20190513
  5. MVI [Concomitant]
     Active Substance: VITAMINS
     Indication: PRODUCT USED FOR UNKNOWN INDICATION
     Dosage: UNK
     Route: 065
  6. PREDNISOLONE. [Concomitant]
     Active Substance: PREDNISOLONE
     Indication: PROPHYLAXIS
     Dosage: 2 MG/KG
     Route: 065
     Dates: start: 20190512, end: 20190514
  7. PREDNISOLONE. [Concomitant]
     Active Substance: PREDNISOLONE
     Dosage: 1 MG/KG
     Route: 065
     Dates: start: 20190529, end: 20190923
  8. MIRALAX [Concomitant]
     Active Substance: POLYETHYLENE GLYCOL 3350
     Indication: PRODUCT USED FOR UNKNOWN INDICATION
     Dosage: UNK, PRN
     Route: 065
  9. PREDNISOLONE. [Concomitant]
     Active Substance: PREDNISOLONE
     Dosage: 2 MG/KG
     Route: 065
     Dates: start: 20190520, end: 20190528
  10. RANITIDINE. [Concomitant]
     Active Substance: RANITIDINE
     Dosage: 3.5 MG/KG, BID
     Route: 065
  11. PREDNISOLONE. [Concomitant]
     Active Substance: PREDNISOLONE
     Dosage: 1 MG/KG
     Route: 065
     Dates: start: 20190515, end: 20190519
  12. PREDNISOLONE. [Concomitant]
     Active Substance: PREDNISOLONE
     Dosage: 1 MG/KG, QD
     Route: 065
     Dates: start: 20190520, end: 20190528
  13. RANITIDINE. [Concomitant]
     Active Substance: RANITIDINE
     Dosage: 3.4 MG/KG, BID
     Route: 065
  14. RANITIDINE. [Concomitant]
     Active Substance: RANITIDINE
     Dosage: 2 ML, BID
     Route: 065

REACTIONS (12)
  - Transaminases increased [Unknown]
  - Troponin I increased [Recovered/Resolved]
  - Gamma-glutamyltransferase increased [Recovered/Resolved]
  - Aspartate aminotransferase increased [Recovered/Resolved]
  - Unintentional medical device removal [Recovered/Resolved]
  - Thrombocytopenia [Recovered/Resolved]
  - Leukopenia [Recovered/Resolved]
  - Alanine aminotransferase increased [Recovered/Resolved]
  - Parainfluenzae virus infection [Recovered/Resolved]
  - Aspartate aminotransferase increased [Recovered/Resolved]
  - Gamma-glutamyltransferase increased [Recovered/Resolved]
  - Alanine aminotransferase increased [Recovered/Resolved]

NARRATIVE: CASE EVENT DATE: 20190520
